FAERS Safety Report 10205529 (Version 2)
Quarter: 2015Q1

REPORT INFORMATION
  Report Type: Spontaneous
  Country: GB (occurrence: GB)
  Receive Date: 20140529
  Receipt Date: 20140530
  Transmission Date: 20150720
  Serious: Yes (Other)
  Sender: FDA-Public Use
  Company Number: GB-ACTAVIS-2014-11504

PATIENT
  Age: 30 Year
  Sex: Female

DRUGS (4)
  1. PREDNISONE. [Concomitant]
     Active Substance: PREDNISONE
     Indication: CHRONIC GRAFT VERSUS HOST DISEASE
     Dosage: UNKNOWN
     Route: 065
  2. CLOBETASOL [Suspect]
     Active Substance: CLOBETASOL
     Indication: CHRONIC GRAFT VERSUS HOST DISEASE
     Dosage: PEA-SIZED AMOUNT ON THE TIP OF A VAGINAL DILATOR, TWICE A WEEK FOR 10 MIN
     Route: 061
  3. PREMARIN [Concomitant]
     Active Substance: ESTROGENS, CONJUGATED
     Indication: GENITAL LABIAL ADHESIONS
     Dosage: 1 INCH (2.54 CM) ON THE TIP OF A VAGINAL DILATOR, TWICE A WEEK FOR 10 MIN
     Route: 061
  4. CYCLOSPORINE (UNKNOWN) [Suspect]
     Active Substance: CYCLOSPORINE
     Indication: IMMUNOSUPPRESSANT DRUG THERAPY
     Dosage: 150 MG, DAILY
     Route: 065

REACTIONS (3)
  - Vulvovaginal human papilloma virus infection [Recovered/Resolved]
  - Infection reactivation [Recovered/Resolved]
  - Vaginal dysplasia [Recovered/Resolved]
